FAERS Safety Report 5486173-0 (Version None)
Quarter: 2007Q4

REPORT INFORMATION
  Report Type: 
  Country: None (occurrence: None)
  Receive Date: 20071012
  Receipt Date: 20070926
  Transmission Date: 20080405
  Serious: Yes (Death, Hospitalization)
  Sender: FDA-Public Use
  Company Number: A-US2006-13592

PATIENT
  Age: 71 Year
  Sex: Female
  Weight: 119.7 kg

DRUGS (32)
  1. TRACLEER [Suspect]
     Indication: PULMONARY HYPERTENSION
     Dosage: 125 MG, BID, ORAL
     Route: 048
  2. XOPENEX [Concomitant]
  3. ZOCOR [Concomitant]
  4. ZAROXOLYN [Concomitant]
  5. VITAMIN B COMPLEX (THIAMINE HYDROCHLORIDE, RIBOFLAVIN, PYRIDOXINE HYDR [Concomitant]
  6. TIAZAC [Concomitant]
  7. TEARGEN (BENZALKONIUM CHLORIDE) [Concomitant]
  8. SYNTHROID [Concomitant]
  9. SLOW-FE (FERROUS SULFATE) [Concomitant]
  10. SEREVENT [Concomitant]
  11. SODIUM CHLORIDE [Concomitant]
  12. RESTASIS (CICLOSPORIN) [Concomitant]
  13. REMERON [Concomitant]
  14. OS-CAL (CALCIUM, ERGOCALCIFEROL) [Concomitant]
  15. NITROGLYCERIN [Concomitant]
  16. MIRALAX [Concomitant]
  17. MAGNESIUM OXIDE (MAGNESIUM OXIDE) [Concomitant]
  18. LASIX [Concomitant]
  19. LANTUS [Concomitant]
  20. POTASSIUM (POTASSIUM BICARBONATE, POTASSIUM CHLORIDE) [Concomitant]
  21. NEURONTIN [Concomitant]
  22. FLOVENT [Concomitant]
  23. FLONASE [Concomitant]
  24. EFFEXOR [Concomitant]
  25. DARVOCET-N (PARACETAMOL, DEXTROPROPOXYPHENE NAPSILATE) [Concomitant]
  26. COLCHICUM JTL LIQ [Concomitant]
  27. MULTIVITAMIN (VITAMIN NOS) [Concomitant]
  28. ATARAX [Concomitant]
  29. ALTACE [Concomitant]
  30. ACIPHEX [Concomitant]
  31. ALREX (LOTEPREDNOL ETABONATE) [Concomitant]
  32. OXYGEN (OXYGEN) [Concomitant]

REACTIONS (10)
  - ACUTE PRERENAL FAILURE [None]
  - ARTHRALGIA [None]
  - CARDIAC FAILURE CONGESTIVE [None]
  - CONDITION AGGRAVATED [None]
  - FALL [None]
  - FLUID OVERLOAD [None]
  - GENERAL PHYSICAL HEALTH DETERIORATION [None]
  - GENERALISED OEDEMA [None]
  - RENAL FAILURE ACUTE [None]
  - RESPIRATORY FAILURE [None]
